FAERS Safety Report 5283573-9 (Version None)
Quarter: 2007Q2

REPORT INFORMATION
  Report Type: 
  Country: None (occurrence: None)
  Receive Date: 20070402
  Receipt Date: 20070322
  Transmission Date: 20071010
  Serious: Yes (Other)
  Sender: FDA-Public Use
  Company Number: JP-ROCHE-485385

PATIENT
  Age: 4 Year
  Sex: Female
  Weight: 16 kg

DRUGS (4)
  1. TAMIFLU [Suspect]
     Route: 048
     Dates: start: 20070226, end: 20070227
  2. FLOMOX [Concomitant]
     Route: 048
  3. BIOFERMIN R [Concomitant]
     Route: 048
  4. CALONAL [Concomitant]
     Route: 048

REACTIONS (1)
  - HYPOTHERMIA [None]
